FAERS Safety Report 6164034-1 (Version None)
Quarter: 2009Q2

REPORT INFORMATION
  Report Type: 
  Country: None (occurrence: None)
  Receive Date: 20090420
  Receipt Date: 20090409
  Transmission Date: 20091009
  Serious: Yes (Life-Threatening, Hospitalization)
  Sender: FDA-Public Use
  Company Number: 2009-00505

PATIENT
  Age: 62 Year
  Sex: Male
  Weight: 186 kg

DRUGS (1)
  1. VELCADE [Suspect]
     Indication: MULTIPLE MYELOMA
     Dosage: 2.6 MG UNK INTRAVENOUS
     Route: 042
     Dates: start: 20080202, end: 20090207

REACTIONS (3)
  - ATRIAL FIBRILLATION [None]
  - ATRIAL THROMBOSIS [None]
  - SYNCOPE [None]
